FAERS Safety Report 5496130-6 (Version None)
Quarter: 2007Q4

REPORT INFORMATION
  Report Type: 
  Country: None (occurrence: None)
  Receive Date: 20071025
  Receipt Date: 20070130
  Transmission Date: 20080405
  Serious: No
  Sender: FDA-Public Use
  Company Number: A0637629A

PATIENT
  Age: 76 Year
  Sex: Female

DRUGS (4)
  1. ADVAIR DISKUS 100/50 [Suspect]
     Indication: ASTHMA
     Route: 055
     Dates: start: 20060601
  2. ALEVE [Suspect]
     Dates: start: 20061101
  3. SPIRIVA [Concomitant]
  4. FLONASE [Concomitant]

REACTIONS (5)
  - JOINT STIFFNESS [None]
  - PRURITUS [None]
  - PURPURA [None]
  - RASH [None]
  - URTICARIA [None]
